FAERS Safety Report 14172047 (Version 1)
Quarter: 2017Q4

REPORT INFORMATION
  Report Type: Spontaneous
  Country: FR (occurrence: FR)
  Receive Date: 20171108
  Receipt Date: 20171108
  Transmission Date: 20180321
  Serious: Yes (Other)
  Sender: FDA-Public Use
  Company Number: FR-MERCK KGAA-2033612

PATIENT
  Sex: Female

DRUGS (1)
  1. NOVOTHYROX [Suspect]
     Active Substance: LEVOTHYROXINE SODIUM
     Indication: PRODUCT USED FOR UNKNOWN INDICATION

REACTIONS (12)
  - Dacryocystitis [None]
  - Confusional state [None]
  - Arrhythmia [None]
  - Headache [None]
  - Insomnia [None]
  - Abdominal pain upper [None]
  - Diarrhoea [None]
  - Feeling abnormal [None]
  - Abdominal pain [None]
  - Muscle spasms [None]
  - Ageusia [None]
  - Dysgraphia [None]
